FAERS Safety Report 14777975 (Version 5)
Quarter: 2019Q1

REPORT INFORMATION
  Report Type: Report from Study
  Country: DE (occurrence: DE)
  Receive Date: 20180419
  Receipt Date: 20190122
  Transmission Date: 20190417
  Serious: Yes (Life-Threatening, Hospitalization, Other)
  Sender: FDA-Public Use
  Company Number: DE-ACCORD-065748

PATIENT
  Age: 65 Year
  Sex: Male
  Weight: 90 kg

DRUGS (14)
  1. DOCETAXEL. [Suspect]
     Active Substance: DOCETAXEL
     Indication: LUNG ADENOCARCINOMA
     Dosage: TOTAL DAILY DOSE: 150 MG/M2 BSA (BODY SURFACE AREA)
     Route: 042
     Dates: start: 20170418
  2. LEVOTHYROXINE NATRIUM TEVA [Concomitant]
     Indication: PRE-EXISTING DISEASE
     Dosage: DAILY DOSE: 0.05 MG MILLIGRAM(S) EVERY DAY
     Route: 048
  3. LOSNESIUM [Concomitant]
     Indication: PROPHYLAXIS
     Route: 048
  4. VARGATEF [Suspect]
     Active Substance: NINTEDANIB
     Indication: LUNG ADENOCARCINOMA
     Dosage: ALSO RECEIVED ON 03-JAN-2018, 06-OCT-2017 AT 200 MG/D AND 20-JUN-2017 AT 200 MG/D.
     Route: 048
     Dates: start: 20170419, end: 20170424
  5. SODIUM CHLORIDE. [Concomitant]
     Active Substance: SODIUM CHLORIDE
     Indication: PROPHYLAXIS
     Dosage: DAILY DOSE: 1000 ML MILLILITRE(S) EVERY DAY
     Route: 042
     Dates: start: 20170428
  6. HYLO-VISION [Concomitant]
     Active Substance: HYALURONATE SODIUM
     Route: 031
     Dates: start: 20170509
  7. SYMBICORT [Concomitant]
     Active Substance: BUDESONIDE\FORMOTEROL FUMARATE DIHYDRATE
     Indication: PRE-EXISTING DISEASE
     Dosage: DAILY DOSE: 4.5 MG MILLIGRAM(S) EVERY DAY
     Route: 055
  8. BREATRIS GENUAIR [Concomitant]
     Indication: PRE-EXISTING DISEASE
     Dosage: DAILY DOSE: 322 MICROG MICROGRAM(S) EVERY DAY
     Route: 055
  9. ALDACTONE [Concomitant]
     Active Substance: SPIRONOLACTONE
     Indication: PROPHYLAXIS
     Dosage: DAILY DOSE: 25 MG MILLIGRAM(S) EVERY DAY
     Route: 048
     Dates: start: 20161124
  10. PANTOPRAZOLE [Concomitant]
     Active Substance: PANTOPRAZOLE
     Indication: PROPHYLAXIS
     Route: 048
     Dates: start: 20170501
  11. NORVASC [Concomitant]
     Active Substance: AMLODIPINE BESYLATE
     Indication: PROPHYLAXIS
     Dosage: DAILY DOSE: 5 MG MILLIGRAM(S) EVERY DAY
     Route: 048
     Dates: start: 20170425
  12. PREDNISOLONE. [Concomitant]
     Active Substance: PREDNISOLONE
     Indication: PRE-EXISTING DISEASE
     Dosage: DAILY DOSE: 15 MG MILLIGRAM(S) EVERY DAY
     Route: 048
  13. ASS RATIOPHARM [Concomitant]
     Active Substance: ASPIRIN
     Indication: PRE-EXISTING DISEASE
     Dosage: DAILY DOSE: 100 MG MILLIGRAM(S) EVERY DAY
     Route: 048
     Dates: start: 20170414
  14. AQUAPHOR [Concomitant]
     Active Substance: PETROLATUM
     Indication: PRE-EXISTING DISEASE
     Dosage: DAILY DOSE: 10 MG MILLIGRAM(S) EVERY DAY
     Route: 048

REACTIONS (16)
  - Weight decreased [Recovered/Resolved]
  - Decreased appetite [Recovered/Resolved]
  - Abdominal pain upper [Recovered/Resolved]
  - Stomatitis [Recovered/Resolved with Sequelae]
  - Constipation [Recovered/Resolved]
  - Vision blurred [Not Recovered/Not Resolved]
  - C-reactive protein increased [Recovered/Resolved]
  - Hyponatraemia [Not Recovered/Not Resolved]
  - Diarrhoea [Unknown]
  - Nausea [Recovered/Resolved]
  - White blood cell count decreased [Recovered/Resolved]
  - Palmar-plantar erythrodysaesthesia syndrome [Not Recovered/Not Resolved]
  - Bronchitis [Recovered/Resolved]
  - Tumour pain [Unknown]
  - Febrile neutropenia [Recovered/Resolved]
  - Hypokalaemia [Recovered/Resolved]

NARRATIVE: CASE EVENT DATE: 20170425
